FAERS Safety Report 22386594 (Version 2)
Quarter: 2023Q2

REPORT INFORMATION
  Report Type: Spontaneous
  Country: US (occurrence: US)
  Receive Date: 20230531
  Receipt Date: 20230617
  Transmission Date: 20230721
  Serious: No
  Sender: FDA-Public Use
  Company Number: US-JNJFOC-20230559765

PATIENT
  Sex: Female

DRUGS (5)
  1. PEPCID AC MAXIMUM STRENGTH [Suspect]
     Active Substance: FAMOTIDINE
     Indication: Gastrooesophageal reflux disease
     Dosage: 20 MG
     Route: 048
     Dates: start: 20230526, end: 20230527
  2. NORVASC [Concomitant]
     Active Substance: AMLODIPINE BESYLATE
     Indication: Blood pressure measurement
     Route: 065
     Dates: start: 20200409
  3. METOPROLOL [Concomitant]
     Active Substance: METOPROLOL
     Indication: Blood pressure measurement
     Route: 065
     Dates: start: 20200409
  4. CRESTOR [Concomitant]
     Active Substance: ROSUVASTATIN CALCIUM
     Indication: Blood cholesterol
     Route: 065
     Dates: start: 20200409
  5. BRILINTA [Concomitant]
     Active Substance: TICAGRELOR
     Indication: Prophylaxis
     Route: 065
     Dates: start: 20200409

REACTIONS (1)
  - Rash [Unknown]
